FAERS Safety Report 15744438 (Version 11)
Quarter: 2024Q1

REPORT INFORMATION
  Report Type: Report from Study
  Country: AT (occurrence: AT)
  Receive Date: 20181220
  Receipt Date: 20240316
  Transmission Date: 20240410
  Serious: Yes (Hospitalization)
  Sender: FDA-Public Use
  Company Number: AT-ROCHE-2214729

PATIENT
  Age: 40 Year
  Sex: Female
  Weight: 60 kg

DRUGS (42)
  1. DENOSUMAB [Suspect]
     Active Substance: DENOSUMAB
     Indication: HER2 positive breast cancer
     Dosage: 120 MILLIGRAM, QMO
     Route: 058
     Dates: start: 201611, end: 201904
  2. DENOSUMAB [Suspect]
     Active Substance: DENOSUMAB
     Indication: Product used for unknown indication
     Dosage: UNK
     Route: 058
     Dates: start: 20181129
  3. DENOSUMAB [Suspect]
     Active Substance: DENOSUMAB
     Dosage: UNK
     Route: 058
     Dates: start: 20190319
  4. DENOSUMAB [Suspect]
     Active Substance: DENOSUMAB
     Dosage: 120 MILLIGRAM, QMO
     Route: 065
     Dates: start: 20190319, end: 201904
  5. DENOSUMAB [Suspect]
     Active Substance: DENOSUMAB
     Dosage: 120 MILLIGRAM, QMO
     Route: 065
     Dates: start: 2016, end: 20181129
  6. HERCEPTIN [Suspect]
     Active Substance: TRASTUZUMAB
     Indication: HER2 positive breast cancer
     Dosage: 3.6 MILLIGRAM/KILOGRAM, Q4WK
     Route: 042
     Dates: start: 20161114
  7. HERCEPTIN [Suspect]
     Active Substance: TRASTUZUMAB
     Dosage: 600 MILLIGRAM, Q3WK
     Route: 041
     Dates: start: 20180503, end: 20190502
  8. HERCEPTIN [Suspect]
     Active Substance: TRASTUZUMAB
     Dosage: 600 MILLIGRAM, Q3WK
     Route: 041
     Dates: start: 20190509, end: 20191227
  9. FEMARA [Suspect]
     Active Substance: LETROZOLE
     Indication: HER2 positive breast cancer
     Dosage: 2.5 MILLIGRAM, QD, MOST RECENT DOSE ADMINISTERED ON: 25/FEB/2020
     Route: 048
     Dates: start: 20180426, end: 20200225
  10. KADCYLA [Suspect]
     Active Substance: ADO-TRASTUZUMAB EMTANSINE
     Indication: HER2 positive breast cancer
     Dosage: 3.6 MILLIGRAM/KILOGRAM, Q4WK, MOST RECENT DOSE PRIOR TO THE EVENT: 21/AUG/2017MOST RECENT DOSE PRIOR
     Route: 042
     Dates: start: 20161114, end: 20170424
  11. KADCYLA [Suspect]
     Active Substance: ADO-TRASTUZUMAB EMTANSINE
     Dosage: 3.6 MILLIGRAM/KILOGRAM, QD
     Route: 042
     Dates: start: 20170522, end: 20170522
  12. KADCYLA [Suspect]
     Active Substance: ADO-TRASTUZUMAB EMTANSINE
     Dosage: 3.6 MILLIGRAM/KILOGRAM, Q4WK
     Route: 042
     Dates: start: 20170821, end: 20171120
  13. KADCYLA [Suspect]
     Active Substance: ADO-TRASTUZUMAB EMTANSINE
     Dosage: 600 MILLIGRAM, Q3WK
     Route: 042
     Dates: start: 20180305
  14. PERJETA [Suspect]
     Active Substance: PERTUZUMAB
     Indication: HER2 positive breast cancer
     Dosage: 840 MILLIGRAM, Q3WK
     Route: 058
     Dates: start: 20181122, end: 20181122
  15. PERJETA [Suspect]
     Active Substance: PERTUZUMAB
     Dosage: 420 MILLIGRAM, Q3WK, MOST RECENT DOSE ON 27/DEC/2019
     Route: 042
     Dates: start: 201811
  16. PERJETA [Suspect]
     Active Substance: PERTUZUMAB
     Dosage: 420 MILLIGRAM, Q3WK
     Route: 058
     Dates: start: 20190509, end: 20191227
  17. PERJETA [Suspect]
     Active Substance: PERTUZUMAB
     Dosage: 420 MILLIGRAM, Q3WK
     Route: 058
     Dates: start: 20181213, end: 20190502
  18. TRENANTONE [Suspect]
     Active Substance: LEUPROLIDE ACETATE
     Indication: HER2 positive breast cancer
     Dosage: 11.25 MILLIGRAM, Q3MO, MOST RECENT DOSE ADMINISTERED ON: 25/FEB/2020
     Route: 058
     Dates: start: 201804
  19. LEUPROLIDE ACETATE [Suspect]
     Active Substance: ISOPROPYL ALCOHOL\LEUPROLIDE ACETATE
     Indication: HER2 positive breast cancer
     Dosage: 11.25 MILLIGRAM, Q3MO
     Route: 058
     Dates: start: 201804
  20. MEFENAMIC ACID [Concomitant]
     Active Substance: MEFENAMIC ACID
     Indication: Dental fistula
     Dosage: 500 MILLIGRAM
     Route: 065
     Dates: start: 20170315, end: 20200417
  21. MEFENAMIC ACID [Concomitant]
     Active Substance: MEFENAMIC ACID
     Dosage: 500 MILLIGRAM, Q8H
     Route: 065
     Dates: start: 20181113, end: 20181120
  22. ZOFRAN [Concomitant]
     Active Substance: ONDANSETRON HYDROCHLORIDE
     Indication: Product used for unknown indication
     Dosage: UNK
     Route: 065
     Dates: start: 20161115, end: 20200417
  23. ZOFRAN [Concomitant]
     Active Substance: ONDANSETRON HYDROCHLORIDE
     Dosage: 4 MILLIGRAM, QD
     Route: 065
     Dates: start: 20200228, end: 20200228
  24. ACETAMINOPHEN [Concomitant]
     Active Substance: ACETAMINOPHEN
     Indication: Metastases to central nervous system
     Dosage: 500 MILLIGRAM
     Route: 065
     Dates: start: 20170609, end: 20200417
  25. EMEND [Concomitant]
     Active Substance: APREPITANT
     Indication: Product used for unknown indication
     Dosage: 80 MILLIGRAM
     Route: 065
     Dates: start: 20161115, end: 20200417
  26. Miranax [Concomitant]
     Indication: Product used for unknown indication
     Dosage: 550 MILLIGRAM
     Route: 065
     Dates: start: 20161115, end: 20200417
  27. DEXAMETHASONE [Concomitant]
     Active Substance: DEXAMETHASONE
     Indication: Product used for unknown indication
     Dosage: 4 MILLIGRAM, QD
     Route: 065
     Dates: start: 20200303, end: 20200309
  28. DEXAMETHASONE [Concomitant]
     Active Substance: DEXAMETHASONE
     Dosage: 8 MILLIGRAM, BID
     Route: 065
     Dates: start: 20170330, end: 20200417
  29. DEXAMETHASONE [Concomitant]
     Active Substance: DEXAMETHASONE
     Dosage: 8 MILLIGRAM, QD
     Route: 065
     Dates: start: 20170530, end: 20170530
  30. DEXAMETHASONE [Concomitant]
     Active Substance: DEXAMETHASONE
     Dosage: 40 MILLIGRAM, QD
     Route: 065
     Dates: start: 20200229, end: 20200302
  31. VENLAFAXINE [Concomitant]
     Active Substance: VENLAFAXINE HYDROCHLORIDE
     Indication: Night sweats
     Dosage: UNK
     Dates: start: 20190228
  32. ZOLPIDEM [Concomitant]
     Active Substance: ZOLPIDEM TARTRATE
     Indication: Product used for unknown indication
     Dosage: 10 MILLIGRAM
     Route: 065
     Dates: start: 20200228, end: 20200417
  33. FRAGMIN [Concomitant]
     Active Substance: DALTEPARIN SODIUM
     Indication: Product used for unknown indication
     Dosage: UNK UNK, QD
     Route: 065
     Dates: start: 20200228, end: 20200311
  34. POLYETHYLENE GLYCOL 3350\POTASSIUM CHLORIDE\SODIUM BICARBONATE\SODIUM [Concomitant]
     Active Substance: POLYETHYLENE GLYCOL 3350\POTASSIUM CHLORIDE\SODIUM BICARBONATE\SODIUM CHLORIDE
     Indication: Product used for unknown indication
     Dosage: 13.8 GRAM, BID
     Route: 065
     Dates: start: 20200306, end: 20200311
  35. ZOFRAN [Concomitant]
     Active Substance: ONDANSETRON HYDROCHLORIDE
     Indication: Product used for unknown indication
     Dosage: 4 MILLIGRAM, QD
     Route: 065
     Dates: start: 20200228, end: 20200228
  36. LYRICA [Concomitant]
     Active Substance: PREGABALIN
     Indication: Product used for unknown indication
     Dosage: 75 MILLIGRAM, BID
     Route: 065
     Dates: start: 20200225, end: 20200417
  37. MORPHINE [Concomitant]
     Active Substance: MORPHINE
     Indication: Product used for unknown indication
     Dosage: 10 MILLIGRAM, QD
     Dates: start: 20170530, end: 20170530
  38. MORPHINE [Concomitant]
     Active Substance: MORPHINE
     Dosage: 5 MILLIGRAM
     Dates: start: 20200225, end: 20200417
  39. ACETAMINOPHEN [Concomitant]
     Active Substance: ACETAMINOPHEN
     Indication: Product used for unknown indication
     Dosage: 1000 MILLIGRAM, QD
     Route: 065
     Dates: start: 20200228, end: 20200228
  40. AMOXICILLIN [Concomitant]
     Active Substance: AMOXICILLIN
     Indication: Chills
     Dosage: UNK UNK, QD
     Dates: start: 20190415, end: 20190415
  41. LAFENE [Concomitant]
     Indication: Spinal pain
     Dosage: UNK
     Dates: start: 20190421, end: 20200224
  42. Novalgin [Concomitant]
     Dosage: UNK
     Dates: start: 20181117, end: 20200417

REACTIONS (7)
  - Dental fistula [Recovered/Resolved]
  - Spinal pain [Recovered/Resolved]
  - Chills [Recovered/Resolved]
  - Vision blurred [Recovered/Resolved]
  - Night sweats [Recovered/Resolved]
  - Spinal pain [Not Recovered/Not Resolved]
  - Nasopharyngitis [Recovered/Resolved]

NARRATIVE: CASE EVENT DATE: 20181112
